FAERS Safety Report 4423836-X (Version None)
Quarter: 2004Q3

REPORT INFORMATION
  Report Type: 
  Country: None (occurrence: None)
  Receive Date: 20040714
  Receipt Date: 20030516
  Transmission Date: 20050211
  Serious: Yes (Death)
  Sender: FDA-Public Use
  Company Number: 200314659US

PATIENT
  Sex: Female

DRUGS (3)
  1. TAXOTERE [Suspect]
     Dosage: ONCE
  2. CYTOXAN [Concomitant]
  3. DOXORUBICIN HCL [Concomitant]

REACTIONS (1)
  - DEATH [None]
